FAERS Safety Report 24902441 (Version 1)
Quarter: 2025Q1

REPORT INFORMATION
  Report Type: Report from Study
  Country: CA (occurrence: CA)
  Receive Date: 20250130
  Receipt Date: 20250130
  Transmission Date: 20250409
  Serious: Yes (Other)
  Sender: SANDOZ
  Company Number: CA-SANDOZ-SDZ2023CA041952

PATIENT
  Age: 38 Year
  Sex: Male

DRUGS (4)
  1. COLCHICINE [Suspect]
     Active Substance: COLCHICINE
     Indication: Myalgia
     Route: 065
  2. DOXYCYCLINE [Suspect]
     Active Substance: DOXYCYCLINE
     Indication: Product used for unknown indication
     Route: 065
  3. HYRIMOZ [Suspect]
     Active Substance: ADALIMUMAB-ADAZ
     Indication: Hidradenitis
     Dosage: 40 MG, QW (STRENGTH:40 MG)
     Route: 058
     Dates: start: 20231106, end: 20240123
  4. BETAMETHASONE VALERATE [Suspect]
     Active Substance: BETAMETHASONE VALERATE
     Indication: Skin disorder
     Route: 065

REACTIONS (3)
  - Surgery [Unknown]
  - Vasculitis [Unknown]
  - Hidradenitis [Not Recovered/Not Resolved]

NARRATIVE: CASE EVENT DATE: 20240130
